FAERS Safety Report 7128394-7 (Version None)
Quarter: 2010Q4

REPORT INFORMATION
  Report Type: 
  Country: None (occurrence: None)
  Receive Date: 20101130
  Receipt Date: 20101119
  Transmission Date: 20110411
  Serious: Yes (Other)
  Sender: FDA-Public Use
  Company Number: CA-NAPPMUNDI-CAN-2010-0001616

PATIENT
  Sex: Male

DRUGS (3)
  1. OXYCONTIN [Suspect]
     Indication: PAIN
     Route: 048
  2. PERCOCET [Suspect]
     Indication: PAIN
     Route: 048
  3. TYLENOL W/ CODEINE [Suspect]
     Indication: PAIN
     Route: 048

REACTIONS (6)
  - ABDOMINAL PAIN [None]
  - CONSTIPATION [None]
  - DRUG DEPENDENCE [None]
  - DYSPEPSIA [None]
  - MELAENA [None]
  - WEIGHT DECREASED [None]
